FAERS Safety Report 5454085-4 (Version None)
Quarter: 2007Q3

REPORT INFORMATION
  Report Type: 
  Country: None (occurrence: None)
  Receive Date: 20070917
  Receipt Date: 20070228
  Transmission Date: 20080115
  Serious: Yes (Hospitalization)
  Sender: FDA-Public Use
  Company Number: US-ASTRAZENECA-2006UW09861

PATIENT
  Sex: Male
  Weight: 120.5 kg

DRUGS (5)
  1. SEROQUEL [Suspect]
     Indication: SCHIZOPHRENIA
     Route: 048
     Dates: start: 20021211, end: 20040421
  2. SEROQUEL [Suspect]
     Route: 048
     Dates: start: 20041006
  3. RISPERDAL [Concomitant]
  4. ZYPREXA [Concomitant]
  5. PROZAC [Concomitant]

REACTIONS (6)
  - CATARACT [None]
  - COUGH [None]
  - DIABETIC RETINOPATHY [None]
  - DYSPNOEA [None]
  - PYREXIA [None]
  - TYPE 2 DIABETES MELLITUS [None]
